FAERS Safety Report 8004492-0 (Version None)
Quarter: 2011Q4

REPORT INFORMATION
  Report Type: 
  Country: None (occurrence: None)
  Receive Date: 20111221
  Receipt Date: 20111221
  Transmission Date: 20120403
  Serious: Yes (Hospitalization)
  Sender: FDA-Public Use
  Company Number: None

PATIENT

DRUGS (7)
  1. M.V.I. [Concomitant]
  2. COUMADIN [Suspect]
     Indication: ATRIAL FIBRILLATION
     Dosage: PO CHRONIC
     Route: 048
  3. SENOKOT [Concomitant]
  4. TRIAMCINOLONE [Concomitant]
  5. CARTIA XT [Concomitant]
  6. VENTOLIN [Concomitant]
  7. FISH OIL [Concomitant]

REACTIONS (6)
  - INTERNATIONAL NORMALISED RATIO INCREASED [None]
  - URINARY TRACT INFECTION [None]
  - DEMENTIA [None]
  - PNEUMONIA [None]
  - MALAISE [None]
  - PROTHROMBIN TIME PROLONGED [None]
